FAERS Safety Report 10215157 (Version 2)
Quarter: 2014Q3

REPORT INFORMATION
  Report Type: Spontaneous
  Country: IT (occurrence: IT)
  Receive Date: 20140603
  Receipt Date: 20140730
  Transmission Date: 20150326
  Serious: Yes (Hospitalization)
  Sender: FDA-Public Use
  Company Number: PHHY2014IT064168

PATIENT
  Age: 24 Year
  Sex: Male

DRUGS (2)
  1. ABILIFY [Suspect]
     Active Substance: ARIPIPRAZOLE
     Dosage: 5 MG, BID
     Route: 048
     Dates: start: 20140401, end: 20140402
  2. OLANZAPINE. [Suspect]
     Active Substance: OLANZAPINE
     Dosage: 5 MG, QD
     Route: 048
     Dates: start: 20140401, end: 20140402

REACTIONS (6)
  - Agitation [Unknown]
  - Hyperhidrosis [Unknown]
  - Insomnia [Unknown]
  - Syncope [Unknown]
  - Hypertension [Unknown]
  - Akathisia [Unknown]

NARRATIVE: CASE EVENT DATE: 20140401
